FAERS Safety Report 5893025-0 (Version None)
Quarter: 2008Q3

REPORT INFORMATION
  Report Type: 
  Country: None (occurrence: None)
  Receive Date: 20080923
  Receipt Date: 20070730
  Transmission Date: 20090109
  Serious: No
  Sender: FDA-Public Use
  Company Number: US-ASTRAZENECA-2007UW02049

PATIENT
  Age: 48 Year
  Sex: Female
  Weight: 106.4 kg

DRUGS (5)
  1. SEROQUEL [Suspect]
     Indication: DEPRESSION
     Dosage: 150 MG - 200 MG
     Route: 048
     Dates: start: 20011201, end: 20030401
  2. SEROQUEL [Suspect]
     Route: 048
     Dates: start: 20020701
  3. SEROQUEL [Suspect]
     Dosage: 150 MG - 200 MG
     Route: 048
     Dates: start: 20041201, end: 20050401
  4. DEXATRIM [Concomitant]
     Indication: WEIGHT CONTROL
     Dates: start: 19800101
  5. METHADONE HCL [Concomitant]
     Indication: BACK PAIN
     Route: 048
     Dates: start: 20060101

REACTIONS (7)
  - ABNORMAL DREAMS [None]
  - BLOOD CHOLESTEROL INCREASED [None]
  - FEELING ABNORMAL [None]
  - OBESITY [None]
  - PLASTIC SURGERY TO THE FACE [None]
  - SURGERY [None]
  - TYPE 2 DIABETES MELLITUS [None]
